FAERS Safety Report 8890397 (Version 1)
Quarter: 2012Q4

REPORT INFORMATION
  Report Type: 
  Country: DE (occurrence: DE)
  Receive Date: 20121107
  Receipt Date: 20121107
  Transmission Date: 20130627
  Serious: Yes (Hospitalization)
  Sender: FDA-Public Use
  Company Number: DE-MERCK-1211DEU001364

PATIENT
  Age: 92 Year
  Sex: Female
  Weight: 72 kg

DRUGS (5)
  1. JANUMET [Suspect]
     Indication: TYPE 2 DIABETES MELLITUS
     Dosage: 25 mg, qd
     Route: 048
     Dates: start: 20120915, end: 20120930
  2. VALSARTAN [Concomitant]
     Indication: HYPERTENSION
     Dosage: 40 mg, UNK
     Route: 048
     Dates: end: 20120930
  3. METOPROLOL SUCCINATE [Concomitant]
     Indication: ATRIAL FIBRILLATION
     Dosage: 23.75 mg, UNK
     Route: 048
     Dates: end: 20120930
  4. ASS 100 [Concomitant]
     Indication: CORONARY ARTERY DISEASE
     Dosage: 100 mg, UNK
     Route: 048
     Dates: end: 20120930
  5. FUROSEMIDE [Concomitant]
     Indication: CARDIAC FAILURE
     Dosage: 40 mg, UNK
     Route: 048
     Dates: end: 20120930

REACTIONS (1)
  - Drug-induced liver injury [Not Recovered/Not Resolved]
